FAERS Safety Report 5979662-3 (Version None)
Quarter: 2008Q4

REPORT INFORMATION
  Report Type: 
  Country: None (occurrence: None)
  Receive Date: 20081204
  Receipt Date: 20081201
  Transmission Date: 20090506
  Serious: Yes (Other)
  Sender: FDA-Public Use
  Company Number: US-WATSON-2008-07053

PATIENT
  Age: 46 Year
  Sex: Female

DRUGS (2)
  1. NORINYL 1/50-28 (WATSON LABORATORIES) [Suspect]
     Indication: ORAL CONTRACEPTION
     Dosage: UNK
     Route: 065
  2. SUMATRIPTAN [Suspect]
     Indication: MIGRAINE
     Dosage: UNK
     Route: 065

REACTIONS (2)
  - COLITIS ISCHAEMIC [None]
  - POTENTIATING DRUG INTERACTION [None]
